FAERS Safety Report 10691018 (Version 1)
Quarter: 2015Q1

REPORT INFORMATION
  Report Type: Spontaneous
  Country: US (occurrence: None)
  Receive Date: 20150102
  Receipt Date: 20150102
  Transmission Date: 20150720
  Serious: Yes (Other)
  Sender: FDA-Public Use
  Company Number: 54973 AE # 1587

PATIENT
  Age: 9 Month
  Sex: Male

DRUGS (1)
  1. BABY TEETHING [Suspect]
     Active Substance: ARABICA COFFEE BEAN\ATROPA BELLADONNA\CALCIUM PHOSPHATE\CHAMOMILE
     Indication: TEETHING
     Dosage: 1 TAB RUBBED ON GUMSX 8HRS.

REACTIONS (3)
  - Crying [None]
  - Vomiting [None]
  - Seizure [None]

NARRATIVE: CASE EVENT DATE: 201410
